FAERS Safety Report 4375224-2 (Version None)
Quarter: 2004Q2

REPORT INFORMATION
  Report Type: 
  Country: None (occurrence: None)
  Receive Date: 20040610
  Receipt Date: 20040519
  Transmission Date: 20050107
  Serious: Yes (Hospitalization)
  Sender: FDA-Public Use
  Company Number: PHBS2004JP06731

PATIENT
  Age: 76 Year
  Sex: Male
  Weight: 50 kg

DRUGS (3)
  1. VOLTAREN [Suspect]
     Indication: INTERCOSTAL NEURALGIA
     Route: 048
  2. NEUROTROPIN [Concomitant]
     Indication: INTERCOSTAL NEURALGIA
  3. VITAMIN B-12 [Concomitant]

REACTIONS (6)
  - ABDOMINAL PAIN [None]
  - ANOREXIA [None]
  - CHEST PAIN [None]
  - GASTRIC ULCER [None]
  - INSOMNIA [None]
  - WEIGHT DECREASED [None]
